FAERS Safety Report 15939565 (Version 3)
Quarter: 2019Q1

REPORT INFORMATION
  Report Type: Spontaneous
  Country: US (occurrence: US)
  Receive Date: 20190208
  Receipt Date: 20190307
  Transmission Date: 20190417
  Serious: Yes (Other)
  Sender: FDA-Public Use
  Company Number: US-ASTRAZENECA-2018SF22494

PATIENT
  Age: 20052 Day
  Sex: Female
  Weight: 179.2 kg

DRUGS (22)
  1. NEXIUM [Suspect]
     Active Substance: ESOMEPRAZOLE MAGNESIUM
     Route: 048
     Dates: start: 200706, end: 201808
  2. NEXIUM [Suspect]
     Active Substance: ESOMEPRAZOLE MAGNESIUM
     Route: 048
     Dates: start: 20130731
  3. NEXIUM [Suspect]
     Active Substance: ESOMEPRAZOLE MAGNESIUM
     Route: 048
     Dates: start: 20130731
  4. ZOLOFT [Concomitant]
     Active Substance: SERTRALINE HYDROCHLORIDE
  5. VENOFER [Concomitant]
     Active Substance: IRON SUCROSE
  6. CARVEDILOL. [Concomitant]
     Active Substance: CARVEDILOL
  7. NEXIUM [Suspect]
     Active Substance: ESOMEPRAZOLE MAGNESIUM
     Route: 048
     Dates: start: 20180703
  8. PRILOSEC [Suspect]
     Active Substance: OMEPRAZOLE MAGNESIUM
     Route: 048
     Dates: start: 200706, end: 201808
  9. NOVOLOG [Concomitant]
     Active Substance: INSULIN ASPART
  10. FUROSEMIDE. [Concomitant]
     Active Substance: FUROSEMIDE
  11. FLUTICASONE. [Concomitant]
     Active Substance: FLUTICASONE
  12. LOSARTAN. [Concomitant]
     Active Substance: LOSARTAN
  13. SERTRALINE [Concomitant]
     Active Substance: SERTRALINE HYDROCHLORIDE
  14. LANTUS [Concomitant]
     Active Substance: INSULIN GLARGINE
  15. PROVENTIL [Concomitant]
     Active Substance: ALBUTEROL
  16. PROTONIX [Suspect]
     Active Substance: PANTOPRAZOLE SODIUM
     Route: 065
     Dates: start: 20180307, end: 20180525
  17. METOPROLOL TARTRATE. [Concomitant]
     Active Substance: METOPROLOL TARTRATE
  18. HEPARIN [Concomitant]
     Active Substance: HEPARIN SODIUM
  19. ASPIRIN. [Concomitant]
     Active Substance: ASPIRIN
  20. ALBUTEROL SULFATE. [Concomitant]
     Active Substance: ALBUTEROL SULFATE
  21. NEXIUM [Suspect]
     Active Substance: ESOMEPRAZOLE MAGNESIUM
     Route: 048
     Dates: start: 20070620, end: 20180820
  22. PRILOSEC [Suspect]
     Active Substance: OMEPRAZOLE MAGNESIUM
     Route: 048
     Dates: start: 19990201, end: 20041120

REACTIONS (5)
  - Renal failure [Unknown]
  - End stage renal disease [Unknown]
  - Renal injury [Unknown]
  - Chronic kidney disease [Unknown]
  - Nephrogenic anaemia [Unknown]

NARRATIVE: CASE EVENT DATE: 20180731
